FAERS Safety Report 8113945 (Version 2)
Quarter: 2013Q3

REPORT INFORMATION
  Report Type: Spontaneous
  Country: US (occurrence: US)
  Receive Date: 20110831
  Receipt Date: 20130910
  Transmission Date: 20140515
  Serious: No
  Sender: FDA-Public Use
  Company Number: US-BIOGENIDEC-2011BI032414

PATIENT
  Sex: Female

DRUGS (2)
  1. TYSABRI [Suspect]
     Indication: MULTIPLE SCLEROSIS
     Route: 042
     Dates: start: 20061108, end: 20100304
  2. TYSABRI [Suspect]
     Indication: MULTIPLE SCLEROSIS
     Route: 042
     Dates: start: 20110502

REACTIONS (5)
  - Poor venous access [Recovered/Resolved]
  - Gait disturbance [Recovered/Resolved]
  - Drug effect decreased [Recovered/Resolved]
  - Infusion site pain [Recovered/Resolved]
  - Fatigue [Recovered/Resolved]
